FAERS Safety Report 16919757 (Version 1)
Quarter: 2019Q4

REPORT INFORMATION
  Report Type: Spontaneous
  Country: US (occurrence: US)
  Receive Date: 20191015
  Receipt Date: 20191015
  Transmission Date: 20200122
  Serious: Yes (Hospitalization)
  Sender: FDA-Public Use
  Company Number: US-ACTELION-A-NJ2019-196924

PATIENT
  Sex: Female

DRUGS (11)
  1. LEVOTHYROXINE. [Concomitant]
     Active Substance: LEVOTHYROXINE
  2. FOLIC ACID. [Concomitant]
     Active Substance: FOLIC ACID
  3. ARAVA [Concomitant]
     Active Substance: LEFLUNOMIDE
  4. POTASSIUM CHLORIDE. [Concomitant]
     Active Substance: POTASSIUM CHLORIDE
  5. ELIQUIS [Concomitant]
     Active Substance: APIXABAN
  6. TORSEMIDE. [Concomitant]
     Active Substance: TORSEMIDE
  7. HYDRALAZINE [Concomitant]
     Active Substance: HYDRALAZINE HYDROCHLORIDE
  8. METOPROLOL SUCCINATE. [Concomitant]
     Active Substance: METOPROLOL SUCCINATE
  9. PACERONE [Concomitant]
     Active Substance: AMIODARONE HYDROCHLORIDE
  10. TADALAFIL. [Concomitant]
     Active Substance: TADALAFIL
  11. OPSUMIT [Suspect]
     Active Substance: MACITENTAN
     Indication: PULMONARY ARTERIAL HYPERTENSION
     Dosage: 10 MG
     Route: 048

REACTIONS (2)
  - Decreased appetite [Unknown]
  - Diarrhoea [Unknown]
